FAERS Safety Report 5896725-1 (Version None)
Quarter: 2008Q3

REPORT INFORMATION
  Report Type: 
  Country: None (occurrence: None)
  Receive Date: 20080924
  Receipt Date: 20071126
  Transmission Date: 20090109
  Serious: Yes (Other)
  Sender: FDA-Public Use
  Company Number: US-ASTRAZENECA-2007UW27032

PATIENT
  Age: 13685 Day
  Sex: Female

DRUGS (2)
  1. SEROQUEL [Suspect]
     Route: 048
     Dates: start: 20040101
  2. WELLBUTRIN XL [Suspect]
     Dates: start: 20040101

REACTIONS (1)
  - GRAND MAL CONVULSION [None]
